FAERS Safety Report 26022752 (Version 1)
Quarter: 2025Q4

REPORT INFORMATION
  Report Type: Spontaneous
  Country: US (occurrence: None)
  Receive Date: 20251110
  Receipt Date: 20251110
  Transmission Date: 20260117
  Serious: Yes (Other)
  Sender: ENDO
  Company Number: US-ENDO USA, INC.-2025-002263

PATIENT
  Sex: Female

DRUGS (1)
  1. AVEED [Suspect]
     Active Substance: TESTOSTERONE UNDECANOATE
     Indication: Transgender hormonal therapy
     Dosage: (0.3-0.5) MILLIGRAM, UNKNOWN

REACTIONS (4)
  - Virilism [Unknown]
  - Haemorrhagic ovarian cyst [Unknown]
  - Hyperplasia [Unknown]
  - Off label use [Unknown]
